FAERS Safety Report 9303628 (Version 1)
Quarter: 2013Q2

REPORT INFORMATION
  Report Type: Spontaneous
  Country: FI (occurrence: FI)
  Receive Date: 20130522
  Receipt Date: 20130522
  Transmission Date: 20140414
  Serious: Yes (Hospitalization)
  Sender: FDA-Public Use
  Company Number: FI-PFIZER INC-2013150976

PATIENT
  Age: 49 Year
  Sex: Female

DRUGS (2)
  1. EPINEPHRINE [Suspect]
     Indication: ANAPHYLACTIC REACTION
     Dosage: 0.1 MG, SINGLE
     Route: 042
  2. EPINEPHRINE [Suspect]
     Dosage: 0.1 MG, TWICE
     Route: 042

REACTIONS (1)
  - Stress cardiomyopathy [Recovered/Resolved]
